FAERS Safety Report 6022991-8 (Version None)
Quarter: 2008Q4

REPORT INFORMATION
  Report Type: 
  Country: None (occurrence: None)
  Receive Date: 20081230
  Receipt Date: 20080513
  Transmission Date: 20090506
  Serious: No
  Sender: FDA-Public Use
  Company Number: US-ABBOTT-08P-163-0455359-00

PATIENT
  Sex: Male
  Weight: 21.792 kg

DRUGS (1)
  1. OMNICEF [Suspect]
     Indication: PHARYNGITIS STREPTOCOCCAL
     Route: 048

REACTIONS (1)
  - OVERDOSE [None]
